FAERS Safety Report 23965591 (Version 1)
Quarter: 2024Q2

REPORT INFORMATION
  Report Type: Spontaneous
  Country: RU (occurrence: RU)
  Receive Date: 20240612
  Receipt Date: 20240612
  Transmission Date: 20240716
  Serious: Yes (Life-Threatening)
  Sender: FDA-Public Use
  Company Number: RU-JNJFOC-20240618144

PATIENT
  Age: 3 Year
  Sex: Male
  Weight: 15 kg

DRUGS (1)
  1. REMICADE [Suspect]
     Active Substance: INFLIXIMAB
     Indication: Product used for unknown indication
     Route: 041
     Dates: start: 20240319

REACTIONS (2)
  - Pyrexia [Recovered/Resolved]
  - Off label use [Unknown]
